FAERS Safety Report 5840255-X (Version None)
Quarter: 2008Q3

REPORT INFORMATION
  Report Type: 
  Country: None (occurrence: None)
  Receive Date: 20080807
  Receipt Date: 20080807
  Transmission Date: 20090109
  Serious: Yes (Death, Life-Threatening)
  Sender: FDA-Public Use
  Company Number: None

PATIENT
  Age: 76 Year
  Sex: Male
  Weight: 63.5036 kg

DRUGS (1)
  1. SEROQUEL [Suspect]
     Indication: DEPRESSION
     Dosage: 1 PILL DAILY
     Dates: start: 20080616, end: 20080619

REACTIONS (5)
  - ABNORMAL BEHAVIOUR [None]
  - DEPRESSED MOOD [None]
  - GUN SHOT WOUND [None]
  - HOMICIDE [None]
  - SUICIDAL IDEATION [None]
